FAERS Safety Report 6483731-1 (Version None)
Quarter: 2009Q4

REPORT INFORMATION
  Report Type: 
  Country: None (occurrence: None)
  Receive Date: 20091209
  Receipt Date: 20091202
  Transmission Date: 20100525
  Serious: Yes (Hospitalization)
  Sender: FDA-Public Use
  Company Number: CA-ASTRAZENECA-2009SE30409

PATIENT
  Age: 49 Year
  Sex: Female

DRUGS (17)
  1. CRESTOR [Suspect]
     Route: 048
  2. SEROQUEL [Interacting]
     Route: 048
  3. CLOZARIL [Interacting]
     Dosage: ACCIDENTALLY 200 MG ONCE
     Route: 048
     Dates: start: 20091123, end: 20091123
  4. DOMPERIDONE [Interacting]
  5. HALDOL [Interacting]
  6. FOLIC ACID [Concomitant]
  7. ATIVAN [Concomitant]
  8. CAL.D [Concomitant]
  9. FOSINOPRIL SODIUM [Concomitant]
  10. GABAPENTIN [Concomitant]
  11. PROCYCLIDINE HYDROCHLORIDE 2MG TAB [Concomitant]
  12. IRON [Concomitant]
  13. ASPIRIN [Concomitant]
  14. BUPROPION HCL [Concomitant]
  15. COLACE [Concomitant]
  16. PRIMIDONE [Concomitant]
  17. PANTOPRAZOLE [Concomitant]

REACTIONS (3)
  - DRUG INTERACTION [None]
  - SOMNOLENCE [None]
  - WRONG DRUG ADMINISTERED [None]
